FAERS Safety Report 8138991 (Version 13)
Quarter: 2013Q4

REPORT INFORMATION
  Report Type: Spontaneous
  Country: SE (occurrence: SE)
  Receive Date: 20110916
  Receipt Date: 20131115
  Transmission Date: 20140711
  Serious: Yes (Hospitalization, Other)
  Sender: FDA-Public Use
  Company Number: SE-BIOGENIDEC-2011BI033146

PATIENT
  Age: 34 Year
  Sex: Female
  Weight: 66 kg

DRUGS (1)
  1. TYSABRI [Suspect]
     Indication: MULTIPLE SCLEROSIS
     Route: 042
     Dates: start: 200707, end: 20110817

REACTIONS (8)
  - Progressive multifocal leukoencephalopathy [Not Recovered/Not Resolved]
  - Epilepsy [Recovered/Resolved]
  - Immune reconstitution inflammatory syndrome [Recovered/Resolved]
  - Suicide attempt [Recovered/Resolved]
  - Ligament injury [Unknown]
  - Neck injury [Unknown]
  - Depression [Unknown]
  - Multiple sclerosis relapse [Unknown]
